FAERS Safety Report 16270232 (Version 1)
Quarter: 2019Q2

REPORT INFORMATION
  Report Type: Spontaneous
  Country: US (occurrence: US)
  Receive Date: 20190329
  Receipt Date: 20190329
  Transmission Date: 20190711
  Serious: No
  Sender: FDA-Public Use
  Company Number: None

PATIENT
  Age: 64 Year
  Sex: Male

DRUGS (1)
  1. DULAGLUTIDE. [Suspect]
     Active Substance: DULAGLUTIDE
     Indication: DIABETES MELLITUS
     Dosage: ?          OTHER DOSE:.75MG;?
     Route: 058
     Dates: start: 20181218, end: 20190109

REACTIONS (2)
  - Drug intolerance [None]
  - Abdominal pain [None]

NARRATIVE: CASE EVENT DATE: 20190109
